FAERS Safety Report 6814986-9 (Version None)
Quarter: 2010Q3

REPORT INFORMATION
  Report Type: 
  Country: None (occurrence: None)
  Receive Date: 20100702
  Receipt Date: 20100622
  Transmission Date: 20110219
  Serious: Yes (Life-Threatening, Other)
  Sender: FDA-Public Use
  Company Number: US-JNJFOC-20081100503

PATIENT
  Age: 60 Year
  Sex: Female
  Weight: 52 kg

DRUGS (69)
  1. DORIBAX [Suspect]
     Indication: BACTERIAL SEPSIS
     Route: 041
  2. ZOSYN [Concomitant]
  3. VANCOMYCIN [Concomitant]
  4. KLONOPIN [Concomitant]
  5. LEXAPRO [Concomitant]
  6. PROTONIX [Concomitant]
  7. LEVOTHYROXINE SODIUM [Concomitant]
  8. SOMA [Concomitant]
  9. EFFEXOR [Concomitant]
  10. WELLBUTRIN [Concomitant]
  11. LORAZEPAM [Concomitant]
  12. HALOPERIDOL [Concomitant]
  13. CHLORPROMAZINE [Concomitant]
  14. PROPAFOL [Concomitant]
  15. BISACODYL [Concomitant]
  16. DOCUSATE SODIUM [Concomitant]
  17. ZOLPIDEM TARTRATE [Concomitant]
  18. ONDANSETRON HYDROCHLORIDE [Concomitant]
  19. PROCHLORPERAZINE EDISYLATE [Concomitant]
  20. ACETAMINOPHEN [Concomitant]
  21. ENOXAPARIN SODIUM [Concomitant]
  22. CYPROHEPTADINE FUMARATE [Concomitant]
  23. MULTI-VITAMINS [Concomitant]
  24. QUETIAPINE FUMARATE [Concomitant]
  25. POTASSIUM CHLORIDE [Concomitant]
  26. MAGNESIUM SULFATE [Concomitant]
  27. HYDRALAZINE HYDROCHLORIDE [Concomitant]
  28. CEFEPIME HYDROCHLORIDE [Concomitant]
  29. FUROSEMIDE [Concomitant]
  30. ALBUMIN (HUMAN) [Concomitant]
  31. LEVALBUTEROL HCL [Concomitant]
  32. ALBUTEROL [Concomitant]
  33. NOREPINEPHRINE [Concomitant]
  34. NORCURON [Concomitant]
  35. CATHFLO [Concomitant]
  36. VASOPRESSIN [Concomitant]
  37. ACETYLCYSTEINE [Concomitant]
  38. ARIXTRA [Concomitant]
  39. UNASYN [Concomitant]
  40. HYDRALAZINE HCL [Concomitant]
  41. LEVOFLOXACIN [Concomitant]
  42. BUMETANIDE [Concomitant]
  43. TPN [Concomitant]
  44. FENTANYL [Concomitant]
  45. METHYLPREDNISOLONE [Concomitant]
  46. EPOETIN [Concomitant]
  47. CLONIDINE [Concomitant]
  48. NICARDIPINE HYDROCHLORIDE [Concomitant]
  49. REGULAR INSULIN [Concomitant]
  50. METROCLOPRAMIDE [Concomitant]
  51. FAT EMULSIONS [Concomitant]
  52. PANTOPRAZOLE [Concomitant]
  53. SUCRALFATE [Concomitant]
  54. MORPHINE [Concomitant]
  55. CELEXA [Concomitant]
  56. METRONIDAZOLE [Concomitant]
  57. CASPOFUNGIN ACETATE [Concomitant]
  58. PIPERACILL / TAZOBACTAM [Concomitant]
  59. SACCHAROMYCES BOULARDII [Concomitant]
  60. AMIODARONE [Concomitant]
  61. ADENOSINE [Concomitant]
  62. DILTIAZEM HYDROCHLORIDE [Concomitant]
  63. NALOXONE [Concomitant]
  64. NITROGLYCERIN [Concomitant]
  65. RISPERIDONE [Concomitant]
  66. VENOFER [Concomitant]
  67. AMPHOTERACIN B [Concomitant]
  68. LORTAB [Concomitant]
  69. LOPERAMIDE [Concomitant]

REACTIONS (2)
  - ENCEPHALOPATHY [None]
  - SYSTEMIC CANDIDA [None]
